FAERS Safety Report 6385719-8 (Version None)
Quarter: 2009Q4

REPORT INFORMATION
  Report Type: 
  Country: None (occurrence: None)
  Receive Date: 20091002
  Receipt Date: 20081006
  Transmission Date: 20100525
  Serious: No
  Sender: FDA-Public Use
  Company Number: US-ASTRAZENECA-2008UW21699

PATIENT
  Age: 76 Year
  Sex: Female
  Weight: 61.2 kg

DRUGS (3)
  1. ARIMIDEX [Suspect]
     Indication: BREAST CANCER
     Route: 048
  2. LIPITOR [Concomitant]
  3. MANY OTHERS [Concomitant]

REACTIONS (1)
  - SKIN LACERATION [None]
